FAERS Safety Report 8806188 (Version 3)
Quarter: 2012Q4

REPORT INFORMATION
  Report Type: Spontaneous
  Country: IT (occurrence: None)
  Receive Date: 20120918
  Receipt Date: 20121009
  Transmission Date: 20130627
  Serious: Yes (Hospitalization)
  Sender: FDA-Public Use
  Company Number: AUR-APL-2012-03910

PATIENT
  Age: 29 Year
  Sex: Female

DRUGS (5)
  1. MIRTAZAPINE (MIRTAZAPINE) [Suspect]
     Indication: INTENTIONAL SELF-INJURY
     Dosage: 600 mg, total, Oral
     Route: 048
     Dates: start: 20120904, end: 20120904
  2. DEPAKIN [Suspect]
     Dosage: 10 Dosage forms, Total, Oral
     Route: 048
     Dates: start: 20120904, end: 20120904
  3. XANAX [Suspect]
     Route: 048
     Dates: start: 20120904, end: 20120904
  4. ZARELIS (VENLAFAXINE) [Concomitant]
  5. VALDORM (FLURAZEPAM HYDROCHLORIDE) [Concomitant]

REACTIONS (4)
  - Sopor [None]
  - Intentional self-injury [None]
  - Anticonvulsant drug level above therapeutic [None]
  - Drug screen positive [None]
